FAERS Safety Report 10742437 (Version 1)
Quarter: 2015Q1

REPORT INFORMATION
  Report Type: Other
  Country: IT (occurrence: IT)
  Receive Date: 20150127
  Receipt Date: 20150127
  Transmission Date: 20150721
  Serious: Yes (Hospitalization)
  Sender: FDA-Public Use
  Company Number: IT-MYLANLABS-2015M1001281

PATIENT

DRUGS (3)
  1. PRAVASTATINA [Suspect]
     Active Substance: PRAVASTATIN SODIUM
     Indication: DYSLIPIDAEMIA
     Dosage: 40 MG DAILY
     Route: 048
     Dates: start: 20000904, end: 20141118
  2. CANAKINUMAB [Suspect]
     Active Substance: CANAKINUMAB
     Indication: CARDIOVASCULAR EVENT PROPHYLAXIS
     Dosage: 300 MG DAILY
     Route: 058
     Dates: start: 20120306, end: 20150113
  3. CARDIOASPIRIN [Suspect]
     Active Substance: ASPIRIN
     Indication: THROMBOSIS PROPHYLAXIS
     Dosage: 100 MG DAILY
     Route: 048
     Dates: start: 20000904, end: 20141210

REACTIONS (5)
  - Rhabdomyolysis [Recovering/Resolving]
  - Anaemia [Not Recovered/Not Resolved]
  - Colon cancer [Unknown]
  - Urinary tract infection [Recovered/Resolved]
  - Hypergammaglobulinaemia benign monoclonal [Unknown]

NARRATIVE: CASE EVENT DATE: 20141118
